FAERS Safety Report 7540114-0 (Version None)
Quarter: 2011Q2

REPORT INFORMATION
  Report Type: 
  Country: None (occurrence: None)
  Receive Date: 20110603
  Receipt Date: 20110225
  Transmission Date: 20111010
  Serious: Yes (Hospitalization)
  Sender: FDA-Public Use
  Company Number: UTC-005107

PATIENT
  Sex: Female
  Weight: 54.4 kg

DRUGS (2)
  1. TYVASO [Suspect]
     Indication: PULMONARY ARTERIAL HYPERTENSION
     Dosage: 96 MCG (24 MCG, 4 IN 1 D) INHALATION
     Route: 055
     Dates: start: 20101005, end: 20110202
  2. TRACLEER [Concomitant]

REACTIONS (10)
  - TACHYCARDIA [None]
  - SKIN EXFOLIATION [None]
  - FATIGUE [None]
  - EYE IRRITATION [None]
  - DYSPNOEA AT REST [None]
  - DYSGEUSIA [None]
  - PHARYNGITIS [None]
  - EYE MOVEMENT DISORDER [None]
  - CHEST DISCOMFORT [None]
  - LUNG INFECTION [None]
